FAERS Safety Report 9995421 (Version 1)
Quarter: 2014Q1

REPORT INFORMATION
  Report Type: Spontaneous
  Country: US (occurrence: None)
  Receive Date: 20140304
  Receipt Date: 20140304
  Transmission Date: 20141002
  Serious: Yes (Other)
  Sender: FDA-Public Use
  Company Number: RB-55441-2013

PATIENT
  Age: 41 Year
  Sex: Female

DRUGS (2)
  1. BUPRENORPHINE [Suspect]
     Indication: DRUG DEPENDENCE
     Dosage: 4 MG BID, 4 MG TAKEN IN THE MORNING AND 4 MG IN THE EVENING SUBLINGUAL
     Route: 060
     Dates: start: 20130611, end: 201306
  2. ZOLOFT [Concomitant]

REACTIONS (6)
  - Wrong technique in drug usage process [None]
  - Euphoric mood [None]
  - Hallucination, visual [None]
  - Dizziness [None]
  - Feeling abnormal [None]
  - Underdose [None]
